FAERS Safety Report 4522803-5 (Version None)
Quarter: 2004Q4

REPORT INFORMATION
  Report Type: 
  Country: None (occurrence: None)
  Receive Date: 20041209
  Receipt Date: 20041201
  Transmission Date: 20050328
  Serious: Yes (Disabling)
  Sender: FDA-Public Use
  Company Number: JP-MERCK-0412USA00586

PATIENT
  Age: 73 Year
  Sex: Male

DRUGS (6)
  1. DECADRON [Suspect]
     Indication: PROSTATE CANCER
     Route: 048
     Dates: start: 20031114
  2. LENDORMIN [Concomitant]
     Indication: INSOMNIA
     Route: 048
     Dates: start: 20031201
  3. MORPHINE SULFATE [Concomitant]
     Indication: PAIN
     Route: 048
     Dates: start: 20031107
  4. LASIX [Concomitant]
     Indication: POLYURIA
     Route: 048
     Dates: start: 20030926
  5. FAMOTIDINE [Concomitant]
     Indication: GASTRIC ULCER
     Route: 048
     Dates: start: 20030926, end: 20041016
  6. CATLEP [Concomitant]
     Indication: PAIN
     Route: 061
     Dates: start: 20031114

REACTIONS (1)
  - FEMORAL NECK FRACTURE [None]
